FAERS Safety Report 5643804-X (Version None)
Quarter: 2008Q1

REPORT INFORMATION
  Report Type: 
  Country: None (occurrence: None)
  Receive Date: 20080228
  Receipt Date: 20080221
  Transmission Date: 20080703
  Serious: Yes (Other)
  Sender: FDA-Public Use
  Company Number: JP-MERCK-0711USA03702

PATIENT
  Age: 60 Year
  Sex: Male
  Weight: 67 kg

DRUGS (6)
  1. PROPECIA [Suspect]
     Indication: ALOPECIA
     Route: 048
     Dates: start: 20060116, end: 20070423
  2. KLARICID [Suspect]
     Indication: BRONCHITIS CHRONIC
     Route: 048
     Dates: start: 20021214
  3. BLOPRESS [Suspect]
     Indication: HYPERTENSION
     Route: 048
     Dates: start: 20050105
  4. CARDENALIN [Suspect]
     Indication: HYPERTENSION
     Route: 048
     Dates: start: 20030311
  5. CLEANAL [Suspect]
     Indication: BRONCHITIS CHRONIC
     Route: 048
     Dates: start: 20021114
  6. ALLEGRA [Suspect]
     Indication: RHINITIS ALLERGIC
     Route: 048
     Dates: start: 20030327

REACTIONS (1)
  - PLATELET COUNT DECREASED [None]
